FAERS Safety Report 6863528-0 (Version None)
Quarter: 2010Q3

REPORT INFORMATION
  Report Type: 
  Country: None (occurrence: None)
  Receive Date: 20100720
  Receipt Date: 20100712
  Transmission Date: 20110219
  Serious: Yes (Hospitalization, Other)
  Sender: FDA-Public Use
  Company Number: WAES 1007USA01155

PATIENT
  Age: 82 Year
  Sex: Female

DRUGS (21)
  1. COZAAR [Suspect]
     Dosage: PO
     Route: 048
     Dates: start: 20070406
  2. BLINDED THERAPY [Suspect]
     Indication: THROMBOSIS PROPHYLAXIS
     Dosage: 10 MG/DAILY PO
     Route: 048
     Dates: start: 20091208
  3. BLINDED THERAPY [Suspect]
     Indication: THROMBOSIS PROPHYLAXIS
     Dosage: 2 MG/DAILY PO
     Dates: start: 20091208
  4. HYDROCHLOROTHIAZIDE [Suspect]
     Dates: start: 20070406
  5. CIPRALEX [Concomitant]
  6. NOVOLET [Concomitant]
  7. CLONAZEPAM [Concomitant]
  8. AMILORIDE HYDROCHLORIDE [Concomitant]
  9. CALCITRIOL + CALCIUM CARBONATE + ZIN [Concomitant]
  10. CLOPIDOGREL BISULFATE [Concomitant]
  11. DARIFENACIN HYDROBROMIDE [Concomitant]
  12. FUROSEMIDE [Concomitant]
  13. GABAPENTIN [Concomitant]
  14. GLYBURIDE [Concomitant]
  15. LERCANIDIPINE HYDROCHLORIDE [Concomitant]
  16. LEVETIRACETAM [Concomitant]
  17. METFORMIN HCL [Concomitant]
  18. OFLOXACIN [Concomitant]
  19. PANTOPRAZOLE SODIUM [Concomitant]
  20. PHENYTOIN [Concomitant]
  21. TOLTERODINE [Concomitant]

REACTIONS (7)
  - CYSTITIS RADIATION [None]
  - HYPONATRAEMIA [None]
  - PERIPHERAL SENSORIMOTOR NEUROPATHY [None]
  - SOMNOLENCE [None]
  - URINARY INCONTINENCE [None]
  - URINARY RETENTION [None]
  - URINARY TRACT INFECTION [None]
